FAERS Safety Report 5145326-1 (Version None)
Quarter: 2006Q4

REPORT INFORMATION
  Report Type: 
  Country: None (occurrence: None)
  Receive Date: 20061107
  Receipt Date: 20061030
  Transmission Date: 20070319
  Serious: Yes (Hospitalization, Other)
  Sender: FDA-Public Use
  Company Number: US-ELI_LILLY_AND_COMPANY-US200611000073

PATIENT
  Age: 50 Year
  Sex: Female

DRUGS (4)
  1. HUMULIN L [Suspect]
     Indication: DIABETES MELLITUS
     Dosage: UNK, UNK
     Dates: start: 19950101
  2. ILETIN [Suspect]
     Indication: DIABETES MELLITUS
     Dates: end: 19950101
  3. NOVOLIN R [Concomitant]
  4. NOVOLIN N [Concomitant]

REACTIONS (7)
  - BLOOD GLUCOSE DECREASED [None]
  - BLOOD GLUCOSE INCREASED [None]
  - BREAST CANCER [None]
  - HYPOGLYCAEMIA UNAWARENESS [None]
  - LYMPHOEDEMA [None]
  - PERIARTHRITIS [None]
  - WEIGHT INCREASED [None]
